FAERS Safety Report 20328596 (Version 1)
Quarter: 2022Q1

REPORT INFORMATION
  Report Type: Spontaneous
  Country: US (occurrence: US)
  Receive Date: 20220112
  Receipt Date: 20220112
  Transmission Date: 20220424
  Serious: Yes (Death, Other)
  Sender: FDA-Public Use
  Company Number: US-AMGEN-USASP2022004335

PATIENT

DRUGS (4)
  1. BLINATUMOMAB [Suspect]
     Active Substance: BLINATUMOMAB
     Indication: B precursor type acute leukaemia
     Dosage: 28 MICROGRAM, QD
     Route: 065
  2. PONATINIB [Concomitant]
     Active Substance: PONATINIB
  3. DASATINIB [Concomitant]
     Active Substance: DASATINIB
  4. IMATINIB [Concomitant]
     Active Substance: IMATINIB

REACTIONS (12)
  - Death [Fatal]
  - Psychotic disorder [Unknown]
  - Leukaemic infiltration extramedullary [Unknown]
  - Bone marrow leukaemic cell infiltration [Unknown]
  - Central nervous system leukaemia [Unknown]
  - Neurotoxicity [Unknown]
  - Cytokine release syndrome [Unknown]
  - Encephalopathy [Unknown]
  - Mental disorder [Unknown]
  - Confusional state [Unknown]
  - Headache [Unknown]
  - Pyrexia [Unknown]
